FAERS Safety Report 10986075 (Version 1)
Quarter: 2015Q1

REPORT INFORMATION
  Report Type: Spontaneous
  Country: US (occurrence: None)
  Receive Date: 20150313
  Receipt Date: 20150313
  Transmission Date: 20150721
  Serious: Yes (Other)
  Sender: FDA-Public Use
  Company Number: US-H14001-14-00124

PATIENT
  Age: 31 Year
  Sex: Female

DRUGS (3)
  1. REGLAN [Suspect]
     Active Substance: METOCLOPRAMIDE HYDROCHLORIDE
     Indication: NAUSEA
     Dosage: 40 MG (10 MG, 1 IN 6 HR), INTRAVENOUS BOLUS
     Route: 040
     Dates: start: 20140526, end: 201405
  2. FLAGYL (METRONIDAZOLE) [Concomitant]
  3. CIPRO [Concomitant]
     Active Substance: CIPROFLOXACIN HYDROCHLORIDE

REACTIONS (4)
  - Hypoaesthesia [None]
  - Off label use [None]
  - Anxiety [None]
  - Dizziness [None]

NARRATIVE: CASE EVENT DATE: 201405
